FAERS Safety Report 19288151 (Version 1)
Quarter: 2021Q2

REPORT INFORMATION
  Report Type: Report from Study
  Country: US (occurrence: US)
  Receive Date: 20210521
  Receipt Date: 20210521
  Transmission Date: 20210717
  Serious: Yes (Hospitalization)
  Sender: FDA-Public Use
  Company Number: US-BAYER-2021-144069

PATIENT
  Age: 68 Year
  Sex: Female

DRUGS (1)
  1. VITRAKVI [Suspect]
     Active Substance: LAROTRECTINIB
     Indication: NEOPLASM
     Dosage: 100 MG, BID
     Route: 048
     Dates: end: 20210513

REACTIONS (1)
  - Liver disorder [None]
